FAERS Safety Report 19171778 (Version 1)
Quarter: 2021Q2

REPORT INFORMATION
  Report Type: Spontaneous
  Country: A1 (occurrence: A1)
  Receive Date: 20210423
  Receipt Date: 20210423
  Transmission Date: 20210717
  Serious: Yes (Death, Other)
  Sender: FDA-Public Use
  Company Number: A1-SHANGHAI HENGRUI PHARMACEUTICAL CO., LTD.-2109667

PATIENT
  Age: 12 Month
  Sex: Female

DRUGS (1)
  1. SEVOFLURANE USP, 100%, LIQUID FOR INHALATION [Suspect]
     Active Substance: SEVOFLURANE
     Indication: GENERAL ANAESTHESIA

REACTIONS (1)
  - Hepatitis acute [Fatal]
